FAERS Safety Report 12250337 (Version 2)
Quarter: 2016Q4

REPORT INFORMATION
  Report Type: Spontaneous
  Country: BR (occurrence: BR)
  Receive Date: 20160408
  Receipt Date: 20161019
  Transmission Date: 20170207
  Serious: Yes (Other)
  Sender: FDA-Public Use
  Company Number: BR-PFIZER INC-2016194007

PATIENT

DRUGS (1)
  1. TALIGLUCERASE ALFA [Suspect]
     Active Substance: TALIGLUCERASE ALFA
     Dosage: UNK

REACTIONS (4)
  - Dyspnoea [Unknown]
  - Pruritus [Unknown]
  - Oedema [Unknown]
  - Rash erythematous [Unknown]

NARRATIVE: CASE EVENT DATE: 2009
